FAERS Safety Report 4956694-5 (Version None)
Quarter: 2006Q1

REPORT INFORMATION
  Report Type: 
  Country: None (occurrence: None)
  Receive Date: 20060323
  Receipt Date: 20060316
  Transmission Date: 20060701
  Serious: Yes (Death, Hospitalization)
  Sender: FDA-Public Use
  Company Number: STA-AE-06-023

PATIENT
  Age: 53 Year
  Sex: Male

DRUGS (6)
  1. ACYCLOVIR [Suspect]
     Indication: HERPES ZOSTER
     Dosage: 3 X 10 MG /KG/D IV
     Route: 042
  2. ACYCLOVIR [Suspect]
     Indication: INFECTION
     Dosage: 3 X 10 MG /KG/D IV
     Route: 042
  3. BUSULFAN [Suspect]
     Indication: LEUKAEMIA
     Dosage: 4 MG/KG/D DAYS 1-4
  4. CYCLOPHOSPHAMIDE [Suspect]
     Indication: LEUKAEMIA
     Dosage: 60MG/KG/D
  5. CYCLOSPORINE [Suspect]
     Indication: LEUKAEMIA
  6. METHOTREXATE [Suspect]
     Indication: LEUKAEMIA
     Dosage: 5MG/M2 ON DAY 1 + 3, 50%

REACTIONS (11)
  - BRAIN HERNIATION [None]
  - BRAIN OEDEMA [None]
  - CEREBRAL HAEMORRHAGE [None]
  - CSF PROTEIN INCREASED [None]
  - ENCEPHALITIS HERPES [None]
  - HERPES SIMPLEX DNA TEST POSITIVE [None]
  - HERPES ZOSTER DISSEMINATED [None]
  - INTRACRANIAL PRESSURE INCREASED [None]
  - MUCOSAL INFLAMMATION [None]
  - NECROSIS [None]
  - SHOULDER PAIN [None]
